FAERS Safety Report 24839650 (Version 2)
Quarter: 2025Q1

REPORT INFORMATION
  Report Type: Spontaneous
  Country: US (occurrence: US)
  Receive Date: 20250114
  Receipt Date: 20250117
  Transmission Date: 20250408
  Serious: Yes (Other)
  Sender: RECKITT BENCKISER
  Company Number: US-PROD-AS2-212756134-20-25-USA-RB-0000268

PATIENT

DRUGS (2)
  1. MUCINEX FAST-MAX COLD AND FLU MAXIMUM STRENGTH [Suspect]
     Active Substance: ACETAMINOPHEN\DEXTROMETHORPHAN HYDROBROMIDE\GUAIFENESIN\PHENYLEPHRINE HYDROCHLORIDE
     Indication: Nasopharyngitis
     Route: 048
  2. MUCINEX FAST-MAX COLD AND FLU MAXIMUM STRENGTH [Suspect]
     Active Substance: ACETAMINOPHEN\DEXTROMETHORPHAN HYDROBROMIDE\GUAIFENESIN\PHENYLEPHRINE HYDROCHLORIDE
     Indication: Influenza

REACTIONS (1)
  - Foreign body in throat [Recovered/Resolved]
